FAERS Safety Report 8096363-9 (Version None)
Quarter: 2012Q1

REPORT INFORMATION
  Report Type: 
  Country: None (occurrence: None)
  Receive Date: 20120131
  Receipt Date: 20120127
  Transmission Date: 20120608
  Serious: Yes (Death, Hospitalization, Other)
  Sender: FDA-Public Use
  Company Number: PHHY2011CZ106778

PATIENT
  Age: 81 Year
  Sex: Male
  Weight: 88 kg

DRUGS (8)
  1. WARFARIN SODIUM [Interacting]
     Dosage: 1.5 MG,
  2. CIPROFLOXACIN [Interacting]
     Indication: BRONCHITIS
     Dosage: 500 MG, BID
     Route: 048
  3. CIPROFLOXACIN [Interacting]
     Dosage: 400 MG, BID
     Route: 042
  4. WARFARIN SODIUM [Interacting]
     Dosage: 3 MG, PER DAY ON DAY 12
  5. WARFARIN SODIUM [Interacting]
     Dosage: 1.5 MG, DAILY, ON DAYS 9?11
  6. CIPROFLOXACIN [Interacting]
     Dosage: 200 MG, BID
     Route: 042
  7. WARFARIN SODIUM [Suspect]
     Indication: ATRIAL FIBRILLATION
     Dosage: 3 MG, DAY
  8. WARFARIN SODIUM [Interacting]
     Dosage: 3 MG, PER DAY ON ALTERNATING DAYS

REACTIONS (10)
  - DEATH [None]
  - MELAENA [None]
  - PYREXIA [None]
  - INTERNATIONAL NORMALISED RATIO INCREASED [None]
  - PANCREATIC NECROSIS [None]
  - INTERVERTEBRAL DISCITIS [None]
  - DRUG INTERACTION [None]
  - FALL [None]
  - GASTROINTESTINAL HAEMORRHAGE [None]
  - BRONCHITIS [None]
